FAERS Safety Report 5085775-3 (Version None)
Quarter: 2006Q3

REPORT INFORMATION
  Report Type: 
  Country: None (occurrence: None)
  Receive Date: 20060817
  Receipt Date: 20060804
  Transmission Date: 20061208
  Serious: Yes (Other)
  Sender: FDA-Public Use
  Company Number: 2006096869

PATIENT
  Age: 60 Year
  Sex: Female
  Weight: 106.5953 kg

DRUGS (9)
  1. TIKOSYN [Suspect]
     Indication: ATRIAL FIBRILLATION
     Dosage: 1000 MCG (500 MCG, 2 IN 1 D)
     Dates: start: 20060101
  2. DIOVAN [Concomitant]
  3. LIPITOR [Concomitant]
  4. IMDUR [Concomitant]
  5. XANAX [Concomitant]
  6. VICODIN [Concomitant]
  7. NITROGLYCERIN [Concomitant]
  8. POTASSIUM [Concomitant]
  9. PHENERGAN [Concomitant]

REACTIONS (5)
  - BLOOD PRESSURE INCREASED [None]
  - CORONARY ARTERY OCCLUSION [None]
  - DRUG EFFECT DECREASED [None]
  - HEART RATE INCREASED [None]
  - MYOCARDIAL INFARCTION [None]
